FAERS Safety Report 9611295 (Version 3)
Quarter: 2014Q2

REPORT INFORMATION
  Report Type: Spontaneous
  Country: US (occurrence: US)
  Receive Date: 20131010
  Receipt Date: 20140505
  Transmission Date: 20141212
  Serious: Yes (Hospitalization)
  Sender: FDA-Public Use
  Company Number: US-BIOGENIDEC-2013BI096424

PATIENT
  Age: 28 Year
  Sex: Female
  Weight: 93 kg

DRUGS (9)
  1. AVONEX [Suspect]
     Indication: MULTIPLE SCLEROSIS
     Route: 030
     Dates: start: 20110514, end: 20110701
  2. AVONEX [Suspect]
     Indication: MULTIPLE SCLEROSIS
     Route: 030
     Dates: start: 20130412, end: 20130918
  3. IRON [Concomitant]
  4. CALCIUM [Concomitant]
  5. VITAMIN B1 [Concomitant]
  6. VITAMIN B12 [Concomitant]
  7. BETA CAROTENE [Concomitant]
  8. VITAMIN D [Concomitant]
  9. MAGNESIUM [Concomitant]
     Indication: PROPHYLAXIS

REACTIONS (11)
  - Gastrectomy [Recovered/Resolved]
  - Injection site hyperaesthesia [Unknown]
  - Retching [Unknown]
  - Sluggishness [Unknown]
  - Headache [Not Recovered/Not Resolved]
  - Palpitations [Recovered/Resolved]
  - Chills [Unknown]
  - Pyrexia [Unknown]
  - Insomnia [Unknown]
  - Dizziness [Recovered/Resolved]
  - Influenza like illness [Recovered/Resolved]
